FAERS Safety Report 9868025 (Version 2)
Quarter: 2014Q1

REPORT INFORMATION
  Report Type: Report from Study
  Country: UA (occurrence: UA)
  Receive Date: 20140204
  Receipt Date: 20140204
  Transmission Date: 20141002
  Serious: Yes (Hospitalization)
  Sender: FDA-Public Use
  Company Number: UA-SANOFI-AVENTIS-2012SA023868

PATIENT
  Age: 39 Year
  Sex: Female
  Weight: 59.5 kg

DRUGS (1)
  1. TERIFLUNOMIDE [Suspect]
     Indication: MULTIPLE SCLEROSIS
     Dosage: DOSE:1 UNIT(S)
     Route: 048
     Dates: start: 20100817

REACTIONS (1)
  - Pharyngitis [Recovered/Resolved]
